FAERS Safety Report 16908443 (Version 2)
Quarter: 2019Q4

REPORT INFORMATION
  Report Type: Spontaneous
  Country: JP (occurrence: JP)
  Receive Date: 20191011
  Receipt Date: 20191115
  Transmission Date: 20200122
  Serious: Yes (Other)
  Sender: FDA-Public Use
  Company Number: JP-GLAXOSMITHKLINE-JP2019JPN181927

PATIENT
  Sex: Female
  Weight: 46 kg

DRUGS (4)
  1. TELMISARTAN. [Concomitant]
     Active Substance: TELMISARTAN
     Dosage: 20 MG, 1D
     Route: 048
  2. ENTECAVIR HYDRATE [Concomitant]
     Indication: CHRONIC HEPATITIS B
     Dosage: UNK
  3. ZEFIX [Suspect]
     Active Substance: LAMIVUDINE
     Indication: CHRONIC HEPATITIS B
     Dosage: 100 MG, 1D
     Route: 048
  4. HEPSERA [Suspect]
     Active Substance: ADEFOVIR DIPIVOXIL
     Indication: CHRONIC HEPATITIS B
     Dosage: 10 MG, 1D
     Route: 048
     Dates: start: 1987

REACTIONS (5)
  - Renal tubular atrophy [Unknown]
  - Blood creatinine increased [Recovering/Resolving]
  - Tubulointerstitial nephritis [Unknown]
  - Beta 2 microglobulin urine increased [Recovering/Resolving]
  - Renal impairment [Unknown]
